FAERS Safety Report 6938767-0 (Version None)
Quarter: 2010Q3

REPORT INFORMATION
  Report Type: 
  Country: None (occurrence: None)
  Receive Date: 20100819
  Receipt Date: 20100816
  Transmission Date: 20110219
  Serious: Yes (Hospitalization, Other)
  Sender: FDA-Public Use
  Company Number: 2010SP036187

PATIENT
  Age: 71 Year
  Sex: Male
  Weight: 68.0396 kg

DRUGS (7)
  1. CLARITIN [Suspect]
     Indication: RASH
     Dosage: 10 MG; ONCE; PO
     Route: 048
     Dates: start: 20100603
  2. ACCUPRIL [Suspect]
     Indication: HYPERTENSION
  3. NORVASC [Suspect]
     Indication: HYPERTENSION
  4. TOPROL-XL [Suspect]
     Indication: HYPERTENSION
  5. FLOMAX [Suspect]
     Indication: HYPERTENSION
  6. AVODART [Concomitant]
  7. HYDROCHLORZIDE [Concomitant]

REACTIONS (3)
  - FALL [None]
  - LOSS OF CONSCIOUSNESS [None]
  - UNEVALUABLE EVENT [None]
